FAERS Safety Report 21974880 (Version 1)
Quarter: 2023Q1

REPORT INFORMATION
  Report Type: Report from Study
  Country: US (occurrence: US)
  Receive Date: 20230209
  Receipt Date: 20230209
  Transmission Date: 20230418
  Serious: No
  Sender: FDA-Public Use
  Company Number: US-INCYTE CORPORATION-2023IN000070

PATIENT

DRUGS (6)
  1. JAKAFI [Suspect]
     Active Substance: RUXOLITINIB
     Indication: Polycythaemia vera
     Dosage: 5 MILLIGRAM, BID
     Route: 065
  2. METOPROLOL [Concomitant]
     Active Substance: METOPROLOL
     Indication: Product used for unknown indication
     Dosage: 12.5 MILLIGRAM
     Route: 065
  3. METAMIZOLE [Concomitant]
     Active Substance: METAMIZOLE
     Indication: Product used for unknown indication
     Dosage: 2.5 MILLIGRAM
     Route: 065
  4. VALIUM [Concomitant]
     Active Substance: DIAZEPAM
     Indication: Product used for unknown indication
     Dosage: 2.5 MILLIGRAM, AS NEEDED
     Route: 065
  5. TYLENOL [Concomitant]
     Active Substance: ACETAMINOPHEN
     Indication: Product used for unknown indication
     Route: 065
  6. ASPIRIN [Concomitant]
     Active Substance: ASPIRIN
     Indication: Product used for unknown indication
     Route: 065

REACTIONS (10)
  - Arthralgia [Unknown]
  - Asthenia [Unknown]
  - Oral contusion [Recovered/Resolved]
  - Pain in extremity [Unknown]
  - Drug hypersensitivity [Unknown]
  - Contrast media allergy [Unknown]
  - Dizziness [Unknown]
  - Nausea [Unknown]
  - Muscle spasms [Unknown]
  - Diarrhoea [Unknown]

NARRATIVE: CASE EVENT DATE: 20230101
